FAERS Safety Report 23207804 (Version 1)
Quarter: 2023Q4

REPORT INFORMATION
  Report Type: Spontaneous
  Country: US (occurrence: US)
  Receive Date: 20231121
  Receipt Date: 20231121
  Transmission Date: 20240109
  Serious: No
  Sender: FDA-Public Use
  Company Number: US-drreddys-SPO/USA/23/0180357

PATIENT
  Age: 36 Year
  Sex: Female

DRUGS (2)
  1. ZENATANE [Suspect]
     Active Substance: ISOTRETINOIN
     Indication: Product used for unknown indication
     Dosage: RMA ISSUE DATE: 08 AUGUST 2022 05:39:59 PM, 09 SEPTEMBER 2022 11:43:01 AM, 11 OCTOBER 2022 03:29:05
  2. ZENATANE [Suspect]
     Active Substance: ISOTRETINOIN
     Dosage: RMA ISSUE DATE: 03 NOVEMBER 2022 06:26:29 PM

REACTIONS (1)
  - Therapy cessation [Unknown]
